FAERS Safety Report 9432251 (Version 1)
Quarter: 2013Q3

REPORT INFORMATION
  Report Type: Spontaneous
  Country: US (occurrence: None)
  Receive Date: 20130730
  Receipt Date: 20130730
  Transmission Date: 20140515
  Serious: Yes (Death)
  Sender: FDA-Public Use
  Company Number: None

PATIENT
  Age: 61 Year
  Sex: Male
  Weight: 56.7 kg

DRUGS (1)
  1. REGORAFENIB [Suspect]
     Indication: RECTAL CANCER
     Dosage: 4 TABLETS -=160MG- DAILY ON DAYS 1-21  PO
     Route: 048
     Dates: start: 20130326, end: 20130712

REACTIONS (1)
  - Ill-defined disorder [None]
